FAERS Safety Report 14171117 (Version 1)
Quarter: 2017Q4

REPORT INFORMATION
  Report Type: Spontaneous
  Country: US (occurrence: US)
  Receive Date: 20171108
  Receipt Date: 20171108
  Transmission Date: 20180321
  Serious: Yes (Hospitalization, Other)
  Sender: FDA-Public Use
  Company Number: US-TAKEDA-2017TUS022872

PATIENT
  Sex: Female

DRUGS (1)
  1. ENTYVIO [Suspect]
     Active Substance: VEDOLIZUMAB
     Indication: PRODUCT USED FOR UNKNOWN INDICATION
     Dosage: 300 MG, UNK
     Route: 042
     Dates: start: 201706, end: 201708

REACTIONS (4)
  - Post procedural complication [Unknown]
  - Facial paralysis [Unknown]
  - Abscess oral [Unknown]
  - Cellulitis [Unknown]

NARRATIVE: CASE EVENT DATE: 201708
